FAERS Safety Report 8076547-6 (Version None)
Quarter: 2012Q1

REPORT INFORMATION
  Report Type: 
  Country: None (occurrence: None)
  Receive Date: 20120127
  Receipt Date: 20120120
  Transmission Date: 20120608
  Serious: Yes (Life-Threatening, Hospitalization)
  Sender: FDA-Public Use
  Company Number: US-BAYER-201032662NA

PATIENT
  Age: 38 Year
  Sex: Female
  Weight: 64.853 kg

DRUGS (4)
  1. MOTRIN [Concomitant]
  2. YAZ [Suspect]
     Route: 048
  3. DILAUDID [Concomitant]
  4. EXCEDRIN [CAFFEINE,PARACETAMOL] [Concomitant]

REACTIONS (2)
  - PULMONARY EMBOLISM [None]
  - DEEP VEIN THROMBOSIS [None]
